FAERS Safety Report 17374120 (Version 1)
Quarter: 2020Q1

REPORT INFORMATION
  Report Type: Spontaneous
  Country: HR (occurrence: HR)
  Receive Date: 20200206
  Receipt Date: 20200206
  Transmission Date: 20200409
  Serious: Yes (Other)
  Sender: FDA-Public Use
  Company Number: HR-TEVA-2020-HR-1181541

PATIENT
  Sex: Male

DRUGS (1)
  1. KLAVOCIN [Suspect]
     Active Substance: AMOXICILLIN\CLAVULANIC ACID
     Dosage: 13 GRAM
     Route: 048
     Dates: start: 20191003, end: 20191003

REACTIONS (3)
  - Suicide attempt [Unknown]
  - No adverse event [Unknown]
  - Intentional overdose [Unknown]

NARRATIVE: CASE EVENT DATE: 20191003
